FAERS Safety Report 9146476 (Version 3)
Quarter: 2014Q4

REPORT INFORMATION
  Report Type: Spontaneous
  Country: US (occurrence: US)
  Receive Date: 20130307
  Receipt Date: 20141212
  Transmission Date: 20150529
  Serious: Yes (Death, Other)
  Sender: FDA-Public Use
  Company Number: US-GLAXOSMITHKLINE-A0966565A

PATIENT
  Sex: Female

DRUGS (2)
  1. REQUIP XL [Suspect]
     Active Substance: ROPINIROLE HYDROCHLORIDE
     Indication: RESTLESS LEGS SYNDROME
     Dosage: 2 MG
     Route: 065
     Dates: start: 20130708
  2. REQUIP [Suspect]
     Active Substance: ROPINIROLE HYDROCHLORIDE
     Indication: PRODUCT USED FOR UNKNOWN INDICATION
     Dosage: 0.5 MG STARTING 13OCT20101 MG STARTING 08MAR2011
     Route: 065
     Dates: start: 20101013

REACTIONS (5)
  - Overdose [Unknown]
  - Pain [Unknown]
  - Death [Fatal]
  - Neoplasm malignant [Not Recovered/Not Resolved]
  - Visual impairment [Not Recovered/Not Resolved]
